FAERS Safety Report 12506814 (Version 2)
Quarter: 2016Q3

REPORT INFORMATION
  Report Type: Spontaneous
  Country: JP (occurrence: JP)
  Receive Date: 20160629
  Receipt Date: 20160816
  Transmission Date: 20161109
  Serious: Yes (Death, Hospitalization, Other)
  Sender: FDA-Public Use
  Company Number: JP-BRISTOL-MYERS SQUIBB COMPANY-BMS-2016-053115

PATIENT
  Age: 63 Year
  Sex: Male
  Weight: 57.9 kg

DRUGS (2)
  1. SUNVEPRA [Suspect]
     Active Substance: ASUNAPREVIR
     Indication: CHRONIC HEPATITIS C
     Dosage: 100 MG, BID
     Route: 048
     Dates: start: 20160216
  2. DAKLINZA [Suspect]
     Active Substance: DACLATASVIR
     Indication: CHRONIC HEPATITIS C
     Dosage: 60 MG, QD
     Route: 048
     Dates: start: 20160216

REACTIONS (4)
  - Pneumonia aspiration [Recovered/Resolved]
  - Putamen haemorrhage [Unknown]
  - Pneumonia [Fatal]
  - Delirium [Unknown]

NARRATIVE: CASE EVENT DATE: 20160430
